FAERS Safety Report 9321509 (Version 2)
Quarter: 2013Q3

REPORT INFORMATION
  Report Type: Spontaneous
  Country: AU (occurrence: AU)
  Receive Date: 20130531
  Receipt Date: 20130801
  Transmission Date: 20140515
  Serious: Yes (Other)
  Sender: FDA-Public Use
  Company Number: PHHY2013AU054291

PATIENT
  Age: 48 Year
  Sex: Female

DRUGS (4)
  1. GILENYA [Suspect]
     Indication: MULTIPLE SCLEROSIS
     Dosage: 0.5 MG, QD
     Route: 048
     Dates: start: 20110615
  2. VITAMIN B 12 [Concomitant]
     Route: 030
  3. ESOMEPRAZOL [Concomitant]
     Dosage: 40 MG, DAILY
     Route: 048
  4. OSTELIN [Concomitant]
     Dosage: 1000 U, DAILY
     Route: 048

REACTIONS (2)
  - Cognitive disorder [Recovering/Resolving]
  - Tremor [Recovering/Resolving]
